FAERS Safety Report 20558078 (Version 2)
Quarter: 2022Q1

REPORT INFORMATION
  Report Type: Report from Study
  Country: US (occurrence: US)
  Receive Date: 20220307
  Receipt Date: 20220307
  Transmission Date: 20220423
  Serious: Yes (Hospitalization)
  Sender: FDA-Public Use
  Company Number: US-ABBVIE-22K-163-4245841-00

PATIENT
  Sex: Female

DRUGS (2)
  1. RINVOQ [Suspect]
     Active Substance: UPADACITINIB
     Indication: Rheumatoid arthritis
     Route: 048
     Dates: start: 202110
  2. RINVOQ [Suspect]
     Active Substance: UPADACITINIB
     Route: 048

REACTIONS (18)
  - Fall [Not Recovered/Not Resolved]
  - Upper limb fracture [Unknown]
  - Ligament sprain [Unknown]
  - Kidney infection [Recovered/Resolved]
  - Gait disturbance [Not Recovered/Not Resolved]
  - Inappropriate schedule of product administration [Unknown]
  - Upper limb fracture [Recovering/Resolving]
  - Ligament sprain [Recovering/Resolving]
  - Balance disorder [Not Recovered/Not Resolved]
  - Red blood cell count decreased [Not Recovered/Not Resolved]
  - Hepatic enzyme increased [Not Recovered/Not Resolved]
  - Memory impairment [Not Recovered/Not Resolved]
  - Lower limb fracture [Recovering/Resolving]
  - Drug ineffective [Unknown]
  - Cast application [Unknown]
  - Loss of personal independence in daily activities [Unknown]
  - Joint injury [Unknown]
  - Pain [Unknown]

NARRATIVE: CASE EVENT DATE: 20220101
